FAERS Safety Report 20709648 (Version 1)
Quarter: 2022Q2

REPORT INFORMATION
  Report Type: Spontaneous
  Country: PT (occurrence: PT)
  Receive Date: 20220414
  Receipt Date: 20220414
  Transmission Date: 20220721
  Serious: Yes (Other)
  Sender: FDA-Public Use
  Company Number: None

PATIENT
  Age: 23 Year
  Sex: Male

DRUGS (2)
  1. AMOXICILLIN [Suspect]
     Active Substance: AMOXICILLIN
     Indication: Dental disorder prophylaxis
     Dosage: 1000 MG, Q12H (1G DE 12 EM 12 HORAS)
     Route: 048
     Dates: start: 20180717, end: 20180727
  2. IBUPROFEN [Concomitant]
     Active Substance: IBUPROFEN
     Indication: Product used for unknown indication
     Dosage: 600 MG, Q12H
     Route: 048

REACTIONS (5)
  - Rash [Recovered/Resolved]
  - Rash maculo-papular [Recovered/Resolved]
  - Angioedema [Recovered/Resolved]
  - Rash [Recovered/Resolved]
  - Pruritus [Recovered/Resolved]

NARRATIVE: CASE EVENT DATE: 20180726
